FAERS Safety Report 5159426-3 (Version None)
Quarter: 2006Q4

REPORT INFORMATION
  Report Type: 
  Country: None (occurrence: None)
  Receive Date: 20061122
  Receipt Date: 20061122
  Transmission Date: 20070319
  Serious: Yes (Other)
  Sender: FDA-Public Use
  Company Number: None

PATIENT
  Age: 62 Year
  Sex: Male

DRUGS (4)
  1. REVLIMID [Suspect]
     Indication: MYELODYSPLASTIC SYNDROME
     Dosage: 5MG DAILY PO
     Route: 048
     Dates: start: 20060425, end: 20061031
  2. NEUPOGEN [Concomitant]
  3. EXJADE [Concomitant]
  4. LORAZEPAM [Concomitant]

REACTIONS (1)
  - THERAPY NON-RESPONDER [None]
